FAERS Safety Report 8227447-X (Version None)
Quarter: 2012Q1

REPORT INFORMATION
  Report Type: 
  Country: None (occurrence: None)
  Receive Date: 20120322
  Receipt Date: 20120315
  Transmission Date: 20120608
  Serious: Yes (Hospitalization)
  Sender: FDA-Public Use
  Company Number: US-BAYER-2011-112002

PATIENT
  Age: 38 Year
  Sex: Female

DRUGS (6)
  1. MAXZIDE [Concomitant]
     Dosage: UNK UNK, QD
     Route: 048
  2. YAZ [Suspect]
     Indication: ACNE
     Dosage: UNK
     Dates: start: 20060101
  3. PROZAC [Concomitant]
     Dosage: UNK UNK, QD
     Route: 048
  4. YASMIN [Suspect]
     Indication: ACNE
     Dosage: UNK
     Dates: start: 20060101
  5. WELLBUTRIN [Concomitant]
     Dosage: UNK UNK, QD
     Route: 048
  6. AVELOX [Concomitant]
     Indication: SINUSITIS

REACTIONS (3)
  - INJURY [None]
  - PAIN [None]
  - PULMONARY EMBOLISM [None]
